FAERS Safety Report 7655886-4 (Version None)
Quarter: 2011Q3

REPORT INFORMATION
  Report Type: 
  Country: None (occurrence: None)
  Receive Date: 20110729
  Receipt Date: 20110718
  Transmission Date: 20111222
  Serious: Yes (Hospitalization)
  Sender: FDA-Public Use
  Company Number: 2010SP065568

PATIENT
  Age: 19 Year
  Sex: Female
  Weight: 52.1637 kg

DRUGS (1)
  1. NUVARING [Suspect]
     Indication: CONTRACEPTION
     Dates: start: 20081001, end: 20090112

REACTIONS (10)
  - MULTIPLE INJURIES [None]
  - PAIN [None]
  - NECK PAIN [None]
  - MUSCULAR WEAKNESS [None]
  - MYELITIS [None]
  - METRORRHAGIA [None]
  - CEREBROVASCULAR ACCIDENT [None]
  - NERVE INJURY [None]
  - ASTHENIA [None]
  - HERPES SIMPLEX [None]
